FAERS Safety Report 5227237-6 (Version None)
Quarter: 2007Q1

REPORT INFORMATION
  Report Type: 
  Country: None (occurrence: None)
  Receive Date: 20070202
  Receipt Date: 20070124
  Transmission Date: 20070707
  Serious: Yes (Other)
  Sender: FDA-Public Use
  Company Number: PT-GLAXOSMITHKLINE-B0456828A

PATIENT
  Age: 4 Year
  Sex: Male

DRUGS (1)
  1. AUGMENTIN '125' [Suspect]
     Indication: DRUG USE FOR UNKNOWN INDICATION

REACTIONS (4)
  - ANOREXIA [None]
  - SOMNOLENCE [None]
  - VOMITING [None]
  - YELLOW SKIN [None]
